FAERS Safety Report 16238544 (Version 3)
Quarter: 2019Q3

REPORT INFORMATION
  Report Type: Spontaneous
  Country: US (occurrence: US)
  Receive Date: 20190425
  Receipt Date: 20190827
  Transmission Date: 20191004
  Serious: Yes (Hospitalization, Other)
  Sender: FDA-Public Use
  Company Number: US-JNJFOC-20190431339

PATIENT
  Sex: Male

DRUGS (3)
  1. XARELTO [Suspect]
     Active Substance: RIVAROXABAN
     Indication: PRODUCT USED FOR UNKNOWN INDICATION
     Route: 048
  2. REVLIMID [Concomitant]
     Active Substance: LENALIDOMIDE
     Indication: PRODUCT USED FOR UNKNOWN INDICATION
     Route: 065
  3. REPATHA [Concomitant]
     Active Substance: EVOLOCUMAB
     Route: 065

REACTIONS (5)
  - Peripheral swelling [Unknown]
  - Pneumonia [Unknown]
  - Vascular graft [Unknown]
  - Plasma cell myeloma [Unknown]
  - Thrombosis [Unknown]
